FAERS Safety Report 25112531 (Version 2)
Quarter: 2025Q2

REPORT INFORMATION
  Report Type: Report from Study
  Country: IT (occurrence: IT)
  Receive Date: 20250324
  Receipt Date: 20250424
  Transmission Date: 20250716
  Serious: Yes (Hospitalization, Other)
  Sender: MYLAN
  Company Number: IT-ROCHE-10000217837

PATIENT
  Age: 72 Year
  Sex: Female

DRUGS (15)
  1. PREDNISONE [Suspect]
     Active Substance: PREDNISONE
     Indication: Diffuse large B-cell lymphoma
  2. PREDNISONE [Suspect]
     Active Substance: PREDNISONE
     Dosage: 171 MILLIGRAM, Q21D
     Dates: start: 20240701
  3. POLATUZUMAB VEDOTIN [Suspect]
     Active Substance: POLATUZUMAB VEDOTIN
     Indication: Diffuse large B-cell lymphoma
  4. POLATUZUMAB VEDOTIN [Suspect]
     Active Substance: POLATUZUMAB VEDOTIN
     Dosage: 110 MILLIGRAM, Q21D
     Dates: start: 20240701
  5. RITUXIMAB [Suspect]
     Active Substance: RITUXIMAB
     Indication: Diffuse large B-cell lymphoma
  6. RITUXIMAB [Suspect]
     Active Substance: RITUXIMAB
     Dosage: 541.2 MILLIGRAM, Q21D
     Dates: start: 20240701
  7. DOXORUBICIN [Suspect]
     Active Substance: DOXORUBICIN
     Indication: Diffuse large B-cell lymphoma
  8. DOXORUBICIN [Suspect]
     Active Substance: DOXORUBICIN
     Dosage: 80 MILLIGRAM, Q21D
     Dates: start: 20240701
  9. CYCLOPHOSPHAMIDE [Suspect]
     Active Substance: CYCLOPHOSPHAMIDE
     Indication: Diffuse large B-cell lymphoma
  10. CYCLOPHOSPHAMIDE [Suspect]
     Active Substance: CYCLOPHOSPHAMIDE
     Dosage: 1285.2 MILLIGRAM, Q21D
     Dates: start: 20240701
  11. RANITIDINE [Concomitant]
     Active Substance: RANITIDINE
     Dates: start: 20240408, end: 20240701
  12. PANTOPRAZOLE SODIUM [Concomitant]
     Active Substance: PANTOPRAZOLE SODIUM
     Dates: start: 20240408, end: 20240701
  13. ALLOPURINOL [Concomitant]
     Active Substance: ALLOPURINOL
     Dates: start: 20240408, end: 20240701
  14. BACTRIM [Concomitant]
     Active Substance: SULFAMETHOXAZOLE\TRIMETHOPRIM
     Dates: start: 20240408, end: 20240701
  15. PREDNISONE [Concomitant]
     Active Substance: PREDNISONE
     Dates: start: 20240408, end: 20240701

REACTIONS (6)
  - Respiratory failure [Recovered/Resolved]
  - COVID-19 [Recovered/Resolved]
  - Escherichia sepsis [Recovered/Resolved]
  - Pneumonia [Recovered/Resolved]
  - Superficial vein thrombosis [Recovered/Resolved]
  - Peripheral vein thrombosis [Recovered/Resolved]

NARRATIVE: CASE EVENT DATE: 20240712
